FAERS Safety Report 24793977 (Version 3)
Quarter: 2025Q3

REPORT INFORMATION
  Report Type: Spontaneous
  Country: US (occurrence: US)
  Receive Date: 20241231
  Receipt Date: 20250803
  Transmission Date: 20251021
  Serious: Yes (Hospitalization, Other)
  Sender: ALEXION PHARMACEUTICALS
  Company Number: US-AstraZeneca-CH-00775090AM

PATIENT
  Age: 77 Year
  Sex: Female
  Weight: 52.616 kg

DRUGS (1)
  1. CALQUENCE [Suspect]
     Active Substance: ACALABRUTINIB
     Indication: Waldenstrom^s macroglobulinaemia
     Dosage: 100 MILLIGRAM
     Dates: start: 20200415, end: 20240917

REACTIONS (5)
  - Sensory loss [Recovered/Resolved]
  - Motor dysfunction [Recovered/Resolved]
  - Chronic inflammatory demyelinating polyradiculoneuropathy [Unknown]
  - Pulmonary thrombosis [Unknown]
  - Paralysis [Unknown]

NARRATIVE: CASE EVENT DATE: 20240917
